FAERS Safety Report 17150440 (Version 1)
Quarter: 2019Q4

REPORT INFORMATION
  Report Type: Spontaneous
  Country: US (occurrence: US)
  Receive Date: 20191213
  Receipt Date: 20191213
  Transmission Date: 20200122
  Serious: No
  Sender: FDA-Public Use
  Company Number: US-ASTRAZENECA-2019SF65477

PATIENT
  Sex: Male

DRUGS (6)
  1. NITROGLYCERIN. [Concomitant]
     Active Substance: NITROGLYCERIN
     Indication: CHEST PAIN
     Dosage: AS REQUIRED
     Route: 065
  2. LOSARTAN CALCIUM [Concomitant]
     Dosage: 25.0MG UNKNOWN
     Route: 048
  3. BRILINTA [Suspect]
     Active Substance: TICAGRELOR
     Indication: MYOCARDIAL INFARCTION
     Route: 048
     Dates: start: 20191106
  4. CARVEDILOL. [Concomitant]
     Active Substance: CARVEDILOL
     Route: 048
  5. ATORVASTATIN CALCIUM. [Concomitant]
     Active Substance: ATORVASTATIN CALCIUM
     Route: 048
  6. AMIODARONE [Concomitant]
     Active Substance: AMIODARONE
     Route: 048

REACTIONS (3)
  - Unevaluable event [Unknown]
  - Poor quality sleep [Unknown]
  - Dyspnoea [Unknown]
